FAERS Safety Report 5858574-X (Version None)
Quarter: 2008Q3

REPORT INFORMATION
  Report Type: 
  Country: None (occurrence: None)
  Receive Date: 20080818
  Receipt Date: 20080522
  Transmission Date: 20090109
  Serious: No
  Sender: FDA-Public Use
  Company Number: TPA2008A00770

PATIENT
  Age: 2 Decade
  Sex: Female

DRUGS (2)
  1. ROZEREM [Suspect]
     Indication: SLEEP DISORDER
     Dosage: 8 MG, HS, PER ORAL
     Route: 048
     Dates: start: 20080101
  2. SEROQUEL [Concomitant]

REACTIONS (3)
  - DRUG EFFECT DECREASED [None]
  - FATIGUE [None]
  - HANGOVER [None]
